FAERS Safety Report 20649109 (Version 1)
Quarter: 2022Q1

REPORT INFORMATION
  Report Type: Spontaneous
  Country: US (occurrence: None)
  Receive Date: 20220328
  Receipt Date: 20220328
  Transmission Date: 20220423
  Serious: Yes (Death)
  Sender: FDA-Public Use
  Company Number: None

PATIENT
  Age: 60 Year
  Sex: Female

DRUGS (10)
  1. INGREZZA [Suspect]
     Active Substance: VALBENAZINE
     Indication: Tardive dyskinesia
     Dosage: FREQUENCY : DAILY;?
     Route: 048
     Dates: start: 20220225, end: 20220325
  2. VARENICLINE 1MG [Concomitant]
  3. PREDNISONE [Concomitant]
     Active Substance: PREDNISONE
  4. METHOCARBAMOL [Concomitant]
     Active Substance: METHOCARBAMOL
  5. ALBUTEROL [Concomitant]
     Active Substance: ALBUTEROL
  6. MIRTAZAPINE [Concomitant]
     Active Substance: MIRTAZAPINE
  7. ONDANSETRON [Concomitant]
     Active Substance: ONDANSETRON
  8. REXULTI [Concomitant]
     Active Substance: BREXPIPRAZOLE
  9. ATOMOXETINE HYDROCHLORIDE [Concomitant]
     Active Substance: ATOMOXETINE HYDROCHLORIDE
  10. ACETAMINOPHEN/CODEINE 300MG/30MG [Concomitant]

REACTIONS (1)
  - Death [None]
